FAERS Safety Report 14657211 (Version 1)
Quarter: 2018Q1

REPORT INFORMATION
  Report Type: Spontaneous
  Country: GB (occurrence: GB)
  Receive Date: 20180319
  Receipt Date: 20180319
  Transmission Date: 20180509
  Serious: Yes (Disabling, Other)
  Sender: FDA-Public Use
  Company Number: GB-PFIZER INC-2018109535

PATIENT
  Age: 55 Year
  Sex: Male
  Weight: 78 kg

DRUGS (1)
  1. PREGABALIN. [Suspect]
     Active Substance: PREGABALIN
     Indication: HEREDITARY NEUROPATHY WITH LIABILITY TO PRESSURE PALSIES
     Dosage: TITRATED OVER SEVERAL WEEKS.
     Route: 048
     Dates: start: 20151006

REACTIONS (3)
  - Hypomania [Recovered/Resolved]
  - Acute psychosis [Unknown]
  - Product use in unapproved indication [Unknown]

NARRATIVE: CASE EVENT DATE: 20151006
